FAERS Safety Report 4486225-8 (Version None)
Quarter: 2004Q4

REPORT INFORMATION
  Report Type: 
  Country: None (occurrence: None)
  Receive Date: 20041021
  Receipt Date: 20030327
  Transmission Date: 20050328
  Serious: Yes (Hospitalization)
  Sender: FDA-Public Use
  Company Number: D01200300468

PATIENT
  Age: 65 Year
  Sex: Male

DRUGS (10)
  1. OXALIPLATIN - SOLUTION - 85 MG/M2 [Suspect]
     Indication: CHEMOTHERAPY NEUROTOXICITY ATTENUATION
     Dosage: 85 MG/M2 Q2W, INTRAVENOUS NOS
     Route: 042
     Dates: start: 20030325, end: 20030325
  2. FLUOROURACIL [Suspect]
     Dosage: 400 MG/M2 AS IV BOLUS THEN 600 MG/M2 AS 22 HOURS CONTINUOUS INFUSION D1-D2 Q2W, INTRAVENOUS NOS
     Route: 042
     Dates: start: 20030325, end: 20030326
  3. SR57746 OR PLACEBO - CAPSULE - 1 MG [Suspect]
     Dosage: 1 MG QD, ORAL
     Route: 048
     Dates: start: 20030114
  4. LEUCOVORIN CALCIUM [Suspect]
     Dosage: 200 MG/M2 AS 2 HOURS INFUSION ON D1-D2 Q2W INTRAVENOUS NOS
     Route: 042
     Dates: start: 20030325, end: 20030326
  5. ACETAMINOPHEN [Concomitant]
  6. ZOFRAN [Concomitant]
  7. AACIDEXAM (DEXAMETHASONE SODIUM PHOSPHATE) [Concomitant]
  8. PRIMPERAN TAB [Concomitant]
  9. CONTRAMAL (TRAMADOL HCL) [Concomitant]
  10. MOVICOL [Concomitant]

REACTIONS (11)
  - ARTHRALGIA [None]
  - BACK PAIN [None]
  - CAROTID ARTERY DISEASE [None]
  - CEREBROVASCULAR DISORDER [None]
  - DIZZINESS [None]
  - HAEMOGLOBIN DECREASED [None]
  - METASTASES TO LUNG [None]
  - MUSCLE CONTRACTIONS INVOLUNTARY [None]
  - MUSCLE CRAMP [None]
  - OEDEMA PERIPHERAL [None]
  - PARTIAL SEIZURES [None]
